FAERS Safety Report 11911906 (Version 1)
Quarter: 2016Q1

REPORT INFORMATION
  Report Type: Spontaneous
  Country: US (occurrence: US)
  Receive Date: 20160112
  Receipt Date: 20160112
  Transmission Date: 20160526
  Serious: Yes (Hospitalization)
  Sender: FDA-Public Use
  Company Number: US-ACTELION-A-US2016-129553

PATIENT
  Age: 13 Year
  Sex: Male

DRUGS (1)
  1. ZAVESCA [Suspect]
     Active Substance: MIGLUSTAT
     Indication: GAUCHER^S DISEASE
     Dosage: 200 MG, BID
     Route: 048
     Dates: start: 20140821

REACTIONS (2)
  - Drug dose omission [Unknown]
  - Neoplasm malignant [Unknown]
